FAERS Safety Report 8394512-6 (Version None)
Quarter: 2012Q2

REPORT INFORMATION
  Report Type: 
  Country: None (occurrence: None)
  Receive Date: 20120530
  Receipt Date: 20120517
  Transmission Date: 20120825
  Serious: Yes (Hospitalization)
  Sender: FDA-Public Use
  Company Number: US-ELI_LILLY_AND_COMPANY-US201204004598

PATIENT
  Sex: Female

DRUGS (10)
  1. FORTEO [Suspect]
     Dosage: 20 UG, QD
  2. ETODOLAC [Concomitant]
     Dosage: 300 MG, BID
  3. TRAMADOL HCL [Concomitant]
     Dosage: 50 MG, EVERY 6 HRS
  4. ACETAMINOPHEN [Concomitant]
     Dosage: 325 MG, EVERY 4 HRS
  5. OMEPRAZOLE [Concomitant]
     Dosage: 20 MG, BID
  6. FORTEO [Suspect]
     Indication: OSTEOPOROSIS
     Dosage: 20 UG, QD
     Dates: start: 20120101
  7. LISINOPRIL [Concomitant]
     Dosage: 10 MG, QD
  8. AMBIEN [Concomitant]
     Dosage: 10 MG, QD
  9. CYMBALTA [Concomitant]
     Dosage: 60 MG, BID
  10. OXYCODONE HCL [Concomitant]
     Dosage: UNK, EVERY 6 HRS

REACTIONS (1)
  - INTERVERTEBRAL DISC DISORDER [None]
